FAERS Safety Report 22201943 (Version 1)
Quarter: 2023Q2

REPORT INFORMATION
  Report Type: Spontaneous
  Country: US (occurrence: None)
  Receive Date: 20230410
  Receipt Date: 20230410
  Transmission Date: 20230722
  Serious: Yes (Other)
  Sender: FDA-Public Use
  Company Number: None

PATIENT
  Age: 70 Year
  Sex: Male
  Weight: 38.50 kg

DRUGS (1)
  1. MIRCERA [Suspect]
     Active Substance: METHOXY POLYETHYLENE GLYCOL-EPOETIN BETA
     Indication: Anaemia
     Dates: start: 20230407, end: 20230407

REACTIONS (9)
  - Retching [None]
  - Abdominal pain [None]
  - Feeling hot [None]
  - Pruritus [None]
  - Hyperhidrosis [None]
  - Tachycardia [None]
  - Heart rate increased [None]
  - Dysphonia [None]
  - Discomfort [None]

NARRATIVE: CASE EVENT DATE: 20230407
